FAERS Safety Report 15236023 (Version 1)
Quarter: 2018Q3

REPORT INFORMATION
  Report Type: Spontaneous
  Country: US (occurrence: US)
  Receive Date: 20180709
  Receipt Date: 20180709
  Transmission Date: 20181010
  Serious: No
  Sender: FDA-Public Use
  Company Number: None

PATIENT

DRUGS (1)
  1. FLUTICASONE PROPIONATE NASAL SPRAY USP 50MCG PER SPRAY 120 METERED SPR [Suspect]
     Active Substance: FLUTICASONE PROPIONATE
     Route: 045

REACTIONS (2)
  - Increased viscosity of upper respiratory secretion [None]
  - Rhinorrhoea [None]
